FAERS Safety Report 24637883 (Version 1)
Quarter: 2024Q4

REPORT INFORMATION
  Report Type: Spontaneous
  Country: RO (occurrence: RO)
  Receive Date: 20241119
  Receipt Date: 20241119
  Transmission Date: 20250115
  Serious: Yes (Other)
  Sender: SANOFI AVENTIS
  Company Number: RO-SA-2024SA313344

PATIENT
  Age: 65 Year
  Sex: Male

DRUGS (2)
  1. DUPIXENT [Suspect]
     Active Substance: DUPILUMAB
     Indication: Nasal polyps
     Dosage: 300 MG, QOW
     Dates: start: 20230620
  2. DUPIXENT [Suspect]
     Active Substance: DUPILUMAB
     Indication: Asthma

REACTIONS (12)
  - Hypereosinophilic syndrome [Unknown]
  - Faeces soft [Unknown]
  - Wheezing [Unknown]
  - Bronchospasm [Unknown]
  - Rhinorrhoea [Unknown]
  - Anosmia [Unknown]
  - Cough [Unknown]
  - Nasal obstruction [Recovering/Resolving]
  - Dysphonia [Unknown]
  - Eosinophil count increased [Unknown]
  - Rhinitis [Unknown]
  - Sneezing [Unknown]

NARRATIVE: CASE EVENT DATE: 20240101
